FAERS Safety Report 8233705-5 (Version None)
Quarter: 2012Q1

REPORT INFORMATION
  Report Type: 
  Country: None (occurrence: None)
  Receive Date: 20120326
  Receipt Date: 20120321
  Transmission Date: 20120608
  Serious: Yes (Hospitalization, Other)
  Sender: FDA-Public Use
  Company Number: PHEH2006US11442

PATIENT
  Sex: Female
  Weight: 84.807 kg

DRUGS (39)
  1. MAGNESIUM [Concomitant]
  2. VERSED [Concomitant]
     Dosage: 3 MG,
  3. HYDROCHLOROTHIAZIDE [Concomitant]
  4. IMDUR [Concomitant]
  5. XANAX [Concomitant]
  6. REVLIMID [Concomitant]
     Dosage: 10 MG, QD
     Route: 048
  7. BIOTIN [Suspect]
  8. SELENIUM [Concomitant]
  9. CAL-MAG [Concomitant]
  10. AREDIA [Suspect]
     Indication: MULTIPLE MYELOMA
     Dates: end: 20060101
  11. CODEINE SULFATE [Suspect]
  12. AMOXICILLIN [Concomitant]
     Dosage: 500 MG,
  13. POTASSIUM CHLORIDE [Concomitant]
  14. CRESTOR [Concomitant]
  15. PREMARIN [Concomitant]
  16. BORTEZOMIB [Concomitant]
  17. DECADRON [Concomitant]
  18. JANUVIA [Concomitant]
     Dosage: 100 MG, QD
  19. ZESTRIL [Concomitant]
  20. ALPRAZOLAM [Concomitant]
  21. SYNTHROID [Concomitant]
  22. ZINC SULFATE [Concomitant]
  23. LASIX [Concomitant]
  24. CLARITIN [Concomitant]
  25. ACYCLOVIR [Concomitant]
     Dosage: 400 MG, ONCE/SINGLE
  26. ZOMETA [Suspect]
     Indication: MULTIPLE MYELOMA
  27. CROCIN [Concomitant]
     Dates: start: 20070124
  28. MULTI-VITAMINS [Concomitant]
  29. ALTACE [Concomitant]
     Dosage: 10 MG,
  30. WARFARIN SODIUM [Concomitant]
  31. ASPIRIN [Concomitant]
  32. VANCOMYCIN [Concomitant]
  33. LOSARTAN POTASSIUM [Concomitant]
  34. GABAPENTIN [Concomitant]
     Dosage: 300 MG, TID
  35. FUROSEMIDE [Concomitant]
  36. CHROMIUM CHLORIDE [Concomitant]
  37. FENTANYL [Concomitant]
     Dosage: 200 UG,
  38. PHENERGAN [Concomitant]
     Dosage: 25 MG, ONCE/SINGLE
  39. IMODIUM [Concomitant]

REACTIONS (100)
  - OSTEONECROSIS OF JAW [None]
  - PYURIA [None]
  - AORTIC STENOSIS [None]
  - VENTRICULAR EXTRASYSTOLES [None]
  - BLINDNESS [None]
  - OSTEOMYELITIS [None]
  - SYMPATHETIC POSTERIOR CERVICAL SYNDROME [None]
  - SYNOVIAL CYST [None]
  - TRICUSPID VALVE INCOMPETENCE [None]
  - BONE DISORDER [None]
  - DEFORMITY [None]
  - GENERAL PHYSICAL HEALTH DETERIORATION [None]
  - EXCESSIVE GRANULATION TISSUE [None]
  - TOOTH FRACTURE [None]
  - PAIN [None]
  - HALLUCINATION [None]
  - CARDIAC FAILURE CONGESTIVE [None]
  - FEBRILE NEUTROPENIA [None]
  - ENGRAFTMENT SYNDROME [None]
  - PETECHIAE [None]
  - NEUROPATHY PERIPHERAL [None]
  - MIGRAINE [None]
  - OSTEOLYSIS [None]
  - VISUAL IMPAIRMENT [None]
  - ORAL FIBROMA [None]
  - HIATUS HERNIA [None]
  - EMOTIONAL DISTRESS [None]
  - ORAL DISORDER [None]
  - ATRIAL FIBRILLATION [None]
  - DYSPNOEA EXERTIONAL [None]
  - HAEMORRHOIDS [None]
  - TEMPOROMANDIBULAR JOINT SYNDROME [None]
  - SPINAL OSTEOARTHRITIS [None]
  - BRONCHIECTASIS [None]
  - EXOSTOSIS [None]
  - URTICARIA [None]
  - OSTEOARTHRITIS [None]
  - ARTHROPATHY [None]
  - DRUG HYPERSENSITIVITY [None]
  - ELECTROCARDIOGRAM T WAVE INVERSION [None]
  - OCCIPITAL NEURALGIA [None]
  - CARDIOMEGALY [None]
  - CHEST DISCOMFORT [None]
  - NECK PAIN [None]
  - MITRAL VALVE CALCIFICATION [None]
  - DRY EYE [None]
  - DIPLOPIA [None]
  - ACTINIC KERATOSIS [None]
  - ABDOMINAL DISTENSION [None]
  - PRIMARY SEQUESTRUM [None]
  - RECTAL HAEMORRHAGE [None]
  - EJECTION FRACTION DECREASED [None]
  - ELECTROCARDIOGRAM QRS COMPLEX ABNORMAL [None]
  - FLUID OVERLOAD [None]
  - AORTIC VALVE DISEASE [None]
  - OSTEITIS [None]
  - CARPAL TUNNEL SYNDROME [None]
  - PULMONARY FIBROSIS [None]
  - OCULAR HYPERAEMIA [None]
  - BURSITIS [None]
  - HERPES ZOSTER [None]
  - VITREOUS FLOATERS [None]
  - PNEUMONIA [None]
  - DECREASED INTEREST [None]
  - INFECTION [None]
  - MOUTH ULCERATION [None]
  - IRRITABLE BOWEL SYNDROME [None]
  - PHARYNGITIS [None]
  - LARYNGITIS [None]
  - BONE GIANT CELL TUMOUR [None]
  - EMPHYSEMA [None]
  - INTERSTITIAL LUNG DISEASE [None]
  - OEDEMA [None]
  - MUSCLE STRAIN [None]
  - IRON DEFICIENCY ANAEMIA [None]
  - HYPOPHAGIA [None]
  - LIFE EXPECTANCY SHORTENED [None]
  - LEFT VENTRICULAR HYPERTROPHY [None]
  - TACHYCARDIA [None]
  - SYNOVIAL RUPTURE [None]
  - DIVERTICULITIS [None]
  - BARTHOLIN'S CYST [None]
  - PNEUMONITIS [None]
  - GOUT [None]
  - CHRONIC OBSTRUCTIVE PULMONARY DISEASE [None]
  - ARTHRALGIA [None]
  - OEDEMA PERIPHERAL [None]
  - INTERVERTEBRAL DISC PROTRUSION [None]
  - PLEURAL EFFUSION [None]
  - ANXIETY [None]
  - TOOTH ABSCESS [None]
  - TOOTHACHE [None]
  - DENTAL CARIES [None]
  - ATRIOVENTRICULAR BLOCK [None]
  - CHRONIC SINUSITIS [None]
  - DEPRESSION [None]
  - CARDIAC MURMUR [None]
  - HYPERCHOLESTEROLAEMIA [None]
  - TRANSAMINASES INCREASED [None]
  - MUCOSAL INFLAMMATION [None]
